FAERS Safety Report 6434827-1 (Version None)
Quarter: 2009Q4

REPORT INFORMATION
  Report Type: 
  Country: None (occurrence: None)
  Receive Date: 20091110
  Receipt Date: 20091027
  Transmission Date: 20100525
  Serious: No
  Sender: FDA-Public Use
  Company Number: US-JNJFOC-20091008910

PATIENT
  Sex: Male
  Weight: 117.94 kg

DRUGS (4)
  1. DURAGESIC-100 [Suspect]
     Route: 062
  2. DURAGESIC-100 [Suspect]
     Indication: BACK PAIN
     Route: 062
  3. HYDROCODONE [Concomitant]
     Indication: PAIN
     Dosage: 10-500MG
     Route: 048
  4. TIZANIDINE HCL [Concomitant]
     Indication: BACK PAIN
     Route: 048

REACTIONS (5)
  - ABNORMAL LOSS OF WEIGHT [None]
  - BLOOD CHOLESTEROL INCREASED [None]
  - DRUG EFFECT DECREASED [None]
  - INAPPROPRIATE SCHEDULE OF DRUG ADMINISTRATION [None]
  - WITHDRAWAL SYNDROME [None]
